FAERS Safety Report 9729482 (Version 1)
Quarter: 2013Q4

REPORT INFORMATION
  Report Type: Spontaneous
  Country: US (occurrence: US)
  Receive Date: 20131204
  Receipt Date: 20131204
  Transmission Date: 20140711
  Serious: No
  Sender: FDA-Public Use
  Company Number: US-GILEAD-2009-0021621

PATIENT
  Age: 64 Year
  Sex: Female
  Weight: 98.43 kg

DRUGS (13)
  1. LETAIRIS [Suspect]
     Indication: PULMONARY ARTERIAL HYPERTENSION
     Route: 048
     Dates: start: 20090126, end: 20090416
  2. REVATIO [Concomitant]
  3. TOPROL XL [Concomitant]
  4. PLENDIL [Concomitant]
  5. MICARDIS [Concomitant]
  6. ZOCOR [Concomitant]
  7. ASA LOW DOSE [Concomitant]
  8. BUMEX [Concomitant]
  9. SPIRONOLACT [Concomitant]
  10. IMURAN [Concomitant]
  11. MOBIC [Concomitant]
  12. HUMIRA KIT [Concomitant]
  13. ZANTAC [Concomitant]

REACTIONS (3)
  - Oedema peripheral [Not Recovered/Not Resolved]
  - Dyspnoea [Not Recovered/Not Resolved]
  - Rash [Not Recovered/Not Resolved]
